FAERS Safety Report 9257856 (Version 1)
Quarter: 2013Q1

REPORT INFORMATION
  Report Type: Spontaneous
  Country: US (occurrence: None)
  Receive Date: 20121212
  Receipt Date: 20121212
  Transmission Date: 20140127
  Serious: No
  Sender: FDA-Public Use
  Company Number: 1208USA010197

PATIENT
  Age: 63 Year
  Sex: Female

DRUGS (5)
  1. VICTRELIS [Suspect]
     Indication: HEPATITIS C
     Route: 048
     Dates: start: 201206, end: 201207
  2. RIBAPAK [Suspect]
     Indication: HEPATITIS C
  3. PEGASYS [Suspect]
     Indication: HEPATITIS C
  4. PEGASYS (PEGINTERFERON ALFA-2A) [Concomitant]
  5. ATENOLOL (ATENOLOL) [Concomitant]

REACTIONS (2)
  - Oesophageal pain [None]
  - Diarrhoea [None]
